FAERS Safety Report 6608166-X (Version None)
Quarter: 2010Q1

REPORT INFORMATION
  Report Type: 
  Country: None (occurrence: None)
  Receive Date: 20100212
  Receipt Date: 20091019
  Transmission Date: 20100710
  Serious: No
  Sender: FDA-Public Use
  Company Number: 1000009533

PATIENT
  Age: 39 Year
  Sex: Male

DRUGS (3)
  1. SAVELLA [Suspect]
     Indication: FIBROMYALGIA
     Dosage: 12. MG (12.5 MG, 1 IN 1 D), ORAL; SEE IMAGE
     Route: 048
     Dates: start: 20091015, end: 20091015
  2. SAVELLA [Suspect]
     Indication: FIBROMYALGIA
     Dosage: 12. MG (12.5 MG, 1 IN 1 D), ORAL; SEE IMAGE
     Route: 048
     Dates: start: 20091016, end: 20091017
  3. SAVELLA [Suspect]
     Indication: FIBROMYALGIA
     Dosage: 12. MG (12.5 MG, 1 IN 1 D), ORAL; SEE IMAGE
     Route: 048
     Dates: start: 20091018

REACTIONS (3)
  - EJACULATION DISORDER [None]
  - PAIN [None]
  - URINARY RETENTION [None]
